FAERS Safety Report 17483510 (Version 1)
Quarter: 2020Q1

REPORT INFORMATION
  Report Type: Spontaneous
  Country: US (occurrence: US)
  Receive Date: 20200301
  Receipt Date: 20200301
  Transmission Date: 20200409
  Serious: No
  Sender: FDA-Public Use
  Company Number: None

PATIENT
  Sex: Female
  Weight: 47.63 kg

DRUGS (3)
  1. NEXPLANON [Concomitant]
     Active Substance: ETONOGESTREL
  2. NEXPLANON [Suspect]
     Active Substance: ETONOGESTREL
  3. CRANBERRY PILLS [Concomitant]

REACTIONS (2)
  - Implant site pain [None]
  - Implant site pruritus [None]
